FAERS Safety Report 5650390-7 (Version None)
Quarter: 2008Q1

REPORT INFORMATION
  Report Type: 
  Country: None (occurrence: None)
  Receive Date: 20080304
  Receipt Date: 20080304
  Transmission Date: 20080703
  Serious: Yes (Other)
  Sender: FDA-Public Use
  Company Number: None

PATIENT
  Age: 37 Year
  Sex: Female
  Weight: 90.7194 kg

DRUGS (3)
  1. TRAMADOL HCL [Suspect]
     Indication: PAIN
     Dosage: MEDROL DOSE PACK AS INSTRUCTED PO
     Route: 048
     Dates: start: 20070122, end: 20070128
  2. MICRONOR [Suspect]
     Indication: CONTRACEPTION
     Dates: start: 20070401, end: 20070407
  3. MEDROL [Suspect]

REACTIONS (3)
  - DRUG INEFFECTIVE [None]
  - MIGRAINE [None]
  - PHARMACEUTICAL PRODUCT COMPLAINT [None]
